FAERS Safety Report 5444080-3 (Version None)
Quarter: 2007Q3

REPORT INFORMATION
  Report Type: 
  Country: None (occurrence: None)
  Receive Date: 20070831
  Receipt Date: 20070817
  Transmission Date: 20080115
  Serious: Yes (Death)
  Sender: FDA-Public Use
  Company Number: S07-CAN-00655-01

PATIENT

DRUGS (2)
  1. TIAZAC [Suspect]
  2. UNSPECIFIED BETA-BLOCKER [Suspect]

REACTIONS (1)
  - DEATH [None]
